FAERS Safety Report 20156580 (Version 1)
Quarter: 2021Q4

REPORT INFORMATION
  Report Type: Spontaneous
  Country: US (occurrence: None)
  Receive Date: 20211207
  Receipt Date: 20211207
  Transmission Date: 20220303
  Serious: No
  Sender: FDA-Public Use
  Company Number: 2021A801410

PATIENT
  Sex: Male

DRUGS (2)
  1. CALQUENCE [Suspect]
     Active Substance: ACALABRUTINIB
     Dosage: UNKNOWN DOSE AND FREQUENCY
     Route: 065
  2. IMBRUVICA [Concomitant]
     Active Substance: IBRUTINIB

REACTIONS (4)
  - Headache [Recovering/Resolving]
  - Taste disorder [Recovering/Resolving]
  - Tongue discomfort [Not Recovered/Not Resolved]
  - Oral discomfort [Recovering/Resolving]
